FAERS Safety Report 19506680 (Version 2)
Quarter: 2021Q3

REPORT INFORMATION
  Report Type: Report from Study
  Country: US (occurrence: US)
  Receive Date: 20210708
  Receipt Date: 20210803
  Transmission Date: 20211014
  Serious: Yes (Hospitalization, Other)
  Sender: FDA-Public Use
  Company Number: US-ADAMAS PHARMA, LLC-2021ADA01527

PATIENT
  Sex: Male

DRUGS (10)
  1. CARBIDOPA; LEVODOPA [Concomitant]
  2. OMEPRAZOLE. [Concomitant]
     Active Substance: OMEPRAZOLE
  3. CLOTRIMAZOLE. [Concomitant]
     Active Substance: CLOTRIMAZOLE
  4. CENTRUM SILVER [Concomitant]
     Active Substance: MINERALS\VITAMINS
  5. GOCOVRI [Suspect]
     Active Substance: AMANTADINE
     Indication: DYSKINESIA
     Dosage: 137 MG, 1X/DAY AT BEDTIME
     Route: 048
     Dates: start: 20210611, end: 20210617
  6. ASPIRIN EC [Concomitant]
     Active Substance: ASPIRIN
  7. GOCOVRI [Suspect]
     Active Substance: AMANTADINE
     Dosage: 274 MG, 1X/DAY AT BEDTIME
     Route: 048
     Dates: start: 20210618, end: 202106
  8. AMANTADINE. [Concomitant]
     Active Substance: AMANTADINE HYDROCHLORIDE
  9. PENICILLIN VK [Concomitant]
     Active Substance: PENICILLIN V POTASSIUM
  10. ROSUVASTATIN. [Concomitant]
     Active Substance: ROSUVASTATIN

REACTIONS (4)
  - Urinary retention [Unknown]
  - Renal cancer [Unknown]
  - Hallucination [Recovered/Resolved]
  - Constipation [Unknown]

NARRATIVE: CASE EVENT DATE: 2021
